FAERS Safety Report 12968692 (Version 3)
Quarter: 2018Q2

REPORT INFORMATION
  Report Type: Report from Study
  Country: DE (occurrence: DE)
  Receive Date: 20161123
  Receipt Date: 20180423
  Transmission Date: 20180711
  Serious: Yes (Other)
  Sender: FDA-Public Use
  Company Number: PHHY2016DE159913

PATIENT
  Sex: Female
  Weight: 78 kg

DRUGS (6)
  1. ULTIBRO BREEZHALER [Suspect]
     Active Substance: GLYCOPYRRONIUM\INDACATEROL
     Indication: CHRONIC OBSTRUCTIVE PULMONARY DISEASE
     Dosage: 1 DF (85 UG INDACATEROL/43 UG GLYCOPYRRONIUM), UNK
     Route: 065
     Dates: start: 20141112, end: 20151020
  2. FORMOTEROL CT [Suspect]
     Active Substance: FORMOTEROL
     Indication: CHRONIC OBSTRUCTIVE PULMONARY DISEASE
     Dosage: 12 UG, BID (1-0-1)
     Route: 055
     Dates: start: 20151029
  3. FORMOTEROL [Suspect]
     Active Substance: FORMOTEROL
     Indication: CHRONIC OBSTRUCTIVE PULMONARY DISEASE
     Dosage: 12 UG, UNK
     Route: 065
     Dates: start: 20151029
  4. SPIRIVA [Suspect]
     Active Substance: TIOTROPIUM BROMIDE MONOHYDRATE
     Indication: CHRONIC OBSTRUCTIVE PULMONARY DISEASE
     Dosage: 18 OT, QD (1-0-0)
     Route: 065
     Dates: start: 20151029
  5. ACC [Concomitant]
     Active Substance: ACETYLCYSTEINE
     Indication: CHRONIC OBSTRUCTIVE PULMONARY DISEASE
     Dosage: 600 OT, PRN
     Route: 065
     Dates: start: 20151029
  6. VALSARTAN. [Concomitant]
     Active Substance: VALSARTAN
     Indication: PRODUCT USED FOR UNKNOWN INDICATION
     Dosage: 80 OT, QD (1-0-0)
     Route: 065
     Dates: start: 20160530

REACTIONS (3)
  - Wheezing [Unknown]
  - Cough [Unknown]
  - Grunting [Unknown]

NARRATIVE: CASE EVENT DATE: 20161117
